FAERS Safety Report 5983080-1 (Version None)
Quarter: 2008Q4

REPORT INFORMATION
  Report Type: 
  Country: None (occurrence: None)
  Receive Date: 20081205
  Receipt Date: 20081205
  Transmission Date: 20090506
  Serious: No
  Sender: FDA-Public Use
  Company Number: None

PATIENT
  Age: 59 Year
  Sex: Female
  Weight: 83.9154 kg

DRUGS (1)
  1. FROVA [Suspect]
     Indication: MIGRAINE
     Dosage: 1 PILL PER DAY.
     Dates: start: 20081111, end: 20081118

REACTIONS (7)
  - ABDOMINAL PAIN UPPER [None]
  - DIARRHOEA [None]
  - EATING DISORDER [None]
  - NAUSEA [None]
  - OESOPHAGEAL PAIN [None]
  - TENDERNESS [None]
  - VOMITING [None]
